FAERS Safety Report 23214238 (Version 1)
Quarter: 2023Q4

REPORT INFORMATION
  Report Type: Spontaneous
  Country: CN (occurrence: CN)
  Receive Date: 20231121
  Receipt Date: 20231121
  Transmission Date: 20240110
  Serious: Yes (Other)
  Sender: FDA-Public Use
  Company Number: CN-PAIPHARMA-2023-CN-000635

PATIENT
  Age: 74 Year
  Sex: Female

DRUGS (7)
  1. ESCITALOPRAM [Suspect]
     Active Substance: ESCITALOPRAM OXALATE
     Indication: Depression
     Dosage: 5 MG DAILY
  2. CLOPIDOGREL [Suspect]
     Active Substance: CLOPIDOGREL BISULFATE
     Indication: Cerebral infarction
     Dosage: 75 MG DAILY
  3. CLOZAPINE [Concomitant]
     Active Substance: CLOZAPINE
     Dosage: 275 MG DAILY
  4. ROSUVASTATIN [Concomitant]
     Active Substance: ROSUVASTATIN
     Dosage: 10 MG EVERY NIGHT
  5. ESTAZOLAM [Concomitant]
     Active Substance: ESTAZOLAM
     Dosage: 1 MG EVERY NIGHT
  6. VALSARTAN [Concomitant]
     Active Substance: VALSARTAN
     Dosage: 80 MG DAILY
  7. POTASSIUM CHLORIDE [Concomitant]
     Active Substance: POTASSIUM CHLORIDE
     Dosage: USED INTERMITTENTLY

REACTIONS (2)
  - Drug interaction [Unknown]
  - Serotonin syndrome [Unknown]
